FAERS Safety Report 5366948-9 (Version None)
Quarter: 2007Q2

REPORT INFORMATION
  Report Type: 
  Country: None (occurrence: None)
  Receive Date: 20070622
  Receipt Date: 20070619
  Transmission Date: 20071010
  Serious: Yes (Hospitalization)
  Sender: FDA-Public Use
  Company Number: FR-BAYER-200510407BFR

PATIENT
  Age: 35 Year
  Sex: Female

DRUGS (11)
  1. CIFLOX [Suspect]
     Indication: ENDOCARDITIS BACTERIAL
     Dosage: TOTAL DAILY DOSE: 1500 MG  UNIT DOSE: 750 MG
     Route: 048
     Dates: start: 20050419, end: 20050509
  2. TAZOCILLINE [Suspect]
     Indication: ENDOCARDITIS BACTERIAL
     Dosage: UNIT DOSE: 4 G
     Route: 042
     Dates: start: 20050419, end: 20050505
  3. PREVISCAN [Concomitant]
     Indication: UNEVALUABLE EVENT
     Dosage: UNIT DOSE: 20 MG
     Route: 048
     Dates: start: 20050412
  4. PREVISCAN [Concomitant]
     Dosage: TOTAL DAILY DOSE: 30 MG  UNIT DOSE: 30 MG
     Route: 048
  5. OMEPRAZOLE [Concomitant]
     Indication: UNEVALUABLE EVENT
     Route: 048
  6. OMEPRAZOLE [Concomitant]
     Dosage: TOTAL DAILY DOSE: 20 MG  UNIT DOSE: 20 MG
     Route: 048
  7. DAFALGAN [Concomitant]
     Indication: UNEVALUABLE EVENT
     Route: 048
  8. DAFALGAN [Concomitant]
     Route: 048
  9. DIFFU K [Concomitant]
     Indication: UNEVALUABLE EVENT
     Dosage: UNIT DOSE: 600 MG
     Route: 048
  10. CLAMOXYL [Concomitant]
     Indication: UNEVALUABLE EVENT
     Route: 065
  11. LEXOMIL [Concomitant]
     Indication: UNEVALUABLE EVENT
     Dosage: UNIT DOSE: 6 MG
     Route: 048

REACTIONS (5)
  - AGRANULOCYTOSIS [None]
  - ANAEMIA [None]
  - CHILLS [None]
  - LUNG DISORDER [None]
  - PYREXIA [None]
